FAERS Safety Report 7744696-5 (Version None)
Quarter: 2011Q3

REPORT INFORMATION
  Report Type: 
  Country: None (occurrence: None)
  Receive Date: 20110912
  Receipt Date: 20110906
  Transmission Date: 20111222
  Serious: Yes (Other)
  Sender: FDA-Public Use
  Company Number: PHHY2009JP25335

PATIENT
  Sex: Female
  Weight: 48 kg

DRUGS (18)
  1. LETROZOLE [Suspect]
     Dosage: 2.5 MG, DAILY
     Route: 048
     Dates: start: 20081212, end: 20100413
  2. RESTAMIN [Concomitant]
     Indication: PROPHYLAXIS
     Dosage: 30 MG, UNK
     Route: 048
     Dates: start: 20080513
  3. LETROZOLE [Suspect]
     Indication: BREAST CANCER
     Dosage: 2.5 MG, QD
     Route: 048
     Dates: start: 20071129
  4. PACLITAXEL [Suspect]
     Indication: BREAST CANCER
     Dosage: 80 MG, DAILY
     Route: 042
     Dates: start: 20080513, end: 20081212
  5. DECADRON [Concomitant]
     Dosage: 8 MG, UNK
     Route: 041
  6. DECADRON [Concomitant]
     Indication: PROPHYLAXIS
     Dosage: 24 MG, UNK
     Route: 041
     Dates: start: 20071211
  7. EPIRUBICIN HYDROCHLORIDE [Suspect]
     Indication: BREAST CANCER
     Dosage: 84 MG, DAILY
     Route: 042
     Dates: start: 20071211, end: 20080408
  8. NEUTROGIN [Concomitant]
     Dosage: 50 UG, UNK
     Route: 030
     Dates: start: 20071225, end: 20080328
  9. RAMELTEON [Concomitant]
     Dosage: 0.3 MG, UNK
     Route: 041
     Dates: start: 20071211, end: 20080408
  10. DECADRON [Concomitant]
     Dosage: 8 MG, UNK
     Route: 042
     Dates: end: 20100216
  11. RESTAMIN [Concomitant]
     Dosage: 30 MG, UNK
     Route: 048
     Dates: end: 20100518
  12. DEXAMETHASONE SODIUM PHOSPHATE [Concomitant]
     Dosage: 6.6 MG, UNK
     Route: 042
     Dates: start: 20100302, end: 20100518
  13. PACLITAXEL [Suspect]
     Dosage: 80 MG, DAILY
     Route: 042
     Dates: start: 20081222, end: 20100518
  14. CYCLOPHOSPHAMIDE [Suspect]
     Indication: BREAST CANCER
     Dosage: 500 MG, DAILY
     Route: 042
     Dates: start: 20071211, end: 20080408
  15. FAMOTIDINE [Concomitant]
     Dosage: 20 MG, UNK
     Route: 042
  16. FAMOTIDINE [Concomitant]
     Dosage: 20 MG, UNK
     Route: 042
     Dates: end: 20100518
  17. ZOMETA [Suspect]
     Indication: METASTASES TO BONE
     Dosage: 4 MG, QW4
     Route: 042
     Dates: start: 20071212, end: 20091215
  18. FAMOTIDINE [Concomitant]
     Indication: PROPHYLAXIS
     Dosage: 20 MG, UNK
     Route: 041
     Dates: start: 20080513

REACTIONS (2)
  - WHITE BLOOD CELL COUNT DECREASED [None]
  - OSTEOMYELITIS [None]
